FAERS Safety Report 9486353 (Version 2)
Quarter: 2013Q4

REPORT INFORMATION
  Report Type: Spontaneous
  Country: GB (occurrence: GB)
  Receive Date: 20130829
  Receipt Date: 20131108
  Transmission Date: 20140711
  Serious: Yes (Other)
  Sender: FDA-Public Use
  Company Number: GB-ASTELLAS-2013EU007296

PATIENT
  Age: 45 Year
  Sex: Female

DRUGS (1)
  1. BETMIGA [Suspect]
     Dosage: UNK
     Route: 048

REACTIONS (6)
  - Tachycardia [Unknown]
  - Lip oedema [Unknown]
  - Palpitations [Unknown]
  - Lower respiratory tract infection [Unknown]
  - Oral candidiasis [Recovered/Resolved]
  - Vulvovaginal candidiasis [Recovered/Resolved]
